FAERS Safety Report 4902229-2 (Version None)
Quarter: 2006Q1

REPORT INFORMATION
  Report Type: 
  Country: None (occurrence: None)
  Receive Date: 20060202
  Receipt Date: 20060118
  Transmission Date: 20060701
  Serious: Yes (Other)
  Sender: FDA-Public Use
  Company Number: 2006BI001214

PATIENT
  Age: 51 Year
  Sex: Female

DRUGS (7)
  1. ZEVALIN [Suspect]
     Indication: DIFFUSE LARGE B-CELL LYMPHOMA
     Dosage: 5.0 MCI;1X;IV
     Route: 042
     Dates: start: 20050406, end: 20050406
  2. ZEVALIN [Suspect]
     Indication: DIFFUSE LARGE B-CELL LYMPHOMA
     Dosage: 31.5 MCI;IX,IV
     Route: 040
     Dates: start: 20050413, end: 20050413
  3. RITUXIMAB [Concomitant]
  4. BCNU [Concomitant]
  5. ETOPOSIDE [Concomitant]
  6. CYTARABINE [Concomitant]
  7. MELPHALAN [Concomitant]

REACTIONS (9)
  - ATROPHY [None]
  - COLITIS [None]
  - DIARRHOEA [None]
  - DUODENITIS [None]
  - GASTROINTESTINAL TOXICITY [None]
  - GIARDIASIS [None]
  - OESOPHAGEAL NEOPLASM [None]
  - OESOPHAGITIS [None]
  - PYREXIA [None]
